FAERS Safety Report 5861775-8 (Version None)
Quarter: 2008Q3

REPORT INFORMATION
  Report Type: 
  Country: None (occurrence: None)
  Receive Date: 20080827
  Receipt Date: 20080709
  Transmission Date: 20090109
  Serious: No
  Sender: FDA-Public Use
  Company Number: US-ABBOTT-08P-163-0461669-00

PATIENT
  Sex: Female
  Weight: 70.37 kg

DRUGS (3)
  1. NIASPAN [Suspect]
     Indication: BLOOD TRIGLYCERIDES INCREASED
     Route: 048
     Dates: start: 20080520, end: 20080604
  2. AZITHROMYCIN [Concomitant]
     Indication: THROAT IRRITATION
     Dosage: DECREASING DOSE
     Route: 048
     Dates: start: 20080613, end: 20080618
  3. PREGABALIN [Concomitant]
     Indication: DRUG USE FOR UNKNOWN INDICATION
     Route: 048

REACTIONS (2)
  - OEDEMA PERIPHERAL [None]
  - THROAT IRRITATION [None]
